FAERS Safety Report 7084369-8 (Version None)
Quarter: 2010Q4

REPORT INFORMATION
  Report Type: 
  Country: None (occurrence: None)
  Receive Date: 20101104
  Receipt Date: 20101101
  Transmission Date: 20110411
  Serious: Yes (Other)
  Sender: FDA-Public Use
  Company Number: US-PFIZER INC-2010139004

PATIENT
  Sex: Male

DRUGS (1)
  1. NAVANE [Suspect]
     Indication: PSYCHOTIC DISORDER
     Dosage: 10 MG, 3X/DAY
     Route: 048
     Dates: start: 20040101

REACTIONS (1)
  - PARKINSON'S DISEASE [None]
